FAERS Safety Report 8973918 (Version 1)
Quarter: 2012Q4

REPORT INFORMATION
  Report Type: 
  Country: GB (occurrence: GB)
  Receive Date: 20121218
  Receipt Date: 20121218
  Transmission Date: 20130627
  Serious: Yes (Other)
  Sender: FDA-Public Use
  Company Number: GB-GLAXOSMITHKLINE-B0853149A

PATIENT
  Age: 64 Year
  Sex: Male

DRUGS (10)
  1. ORLISTAT [Suspect]
     Indication: OBESITY
     Dosage: 3IUAX Per day
     Route: 048
     Dates: start: 20121128
  2. RAMIPRIL [Suspect]
     Indication: HYPERTENSION
     Dosage: 1IUAX Per day
     Route: 048
     Dates: start: 20120120, end: 20121204
  3. QUININE BISULFATE [Concomitant]
  4. SIMVASTATIN [Concomitant]
  5. WARFARIN [Concomitant]
  6. METFORMIN [Concomitant]
  7. LANSOPRAZOLE [Concomitant]
  8. BISOPROLOL [Concomitant]
  9. QVAR [Concomitant]
  10. SALBUTAMOL [Concomitant]

REACTIONS (1)
  - Malaise [Unknown]
